FAERS Safety Report 20825808 (Version 4)
Quarter: 2022Q3

REPORT INFORMATION
  Report Type: Spontaneous
  Country: US (occurrence: US)
  Receive Date: 20220513
  Receipt Date: 20220704
  Transmission Date: 20221027
  Serious: Yes (Hospitalization, Other)
  Sender: FDA-Public Use
  Company Number: US-009507513-2205USA002905

PATIENT
  Sex: Male
  Weight: 72 kg

DRUGS (13)
  1. KEYTRUDA [Suspect]
     Active Substance: PEMBROLIZUMAB
     Indication: Malignant melanoma stage II
     Dosage: 200 MILLIGRAM, UNK
     Route: 042
     Dates: start: 20220316, end: 20220316
  2. KEYTRUDA [Suspect]
     Active Substance: PEMBROLIZUMAB
     Dosage: 200 MILLIGRAM, UNK
     Route: 042
     Dates: start: 20220408, end: 20220408
  3. KEYTRUDA [Suspect]
     Active Substance: PEMBROLIZUMAB
     Dosage: 200 MILLIGRAM, UNK
     Route: 042
     Dates: start: 20220429, end: 20220429
  4. ACYCLOVIR [Concomitant]
     Active Substance: ACYCLOVIR
     Dosage: 1 TABS, ORAL, TID, PRN
     Route: 048
  5. ATORVASTATIN [Concomitant]
     Active Substance: ATORVASTATIN
     Dosage: 0.5 TABS, ORAL, HS, 2 REFILLS
     Route: 048
  6. EMLA [Concomitant]
     Active Substance: LIDOCAINE\PRILOCAINE
     Dosage: 1 APPL, TOPICAL, AS DIRECTED
     Route: 061
  7. GABAPENTIN [Concomitant]
     Active Substance: GABAPENTIN
     Dosage: 100 MG~ 1 CAP, ORAL, BID
     Route: 048
  8. ACETAMINOPHEN\HYDROCODONE [Concomitant]
     Active Substance: ACETAMINOPHEN\HYDROCODONE
     Dosage: 1 TABS., ORAL, Q6H
     Route: 048
  9. LEVOTHYROXINE [Concomitant]
     Active Substance: LEVOTHYROXINE
     Dosage: 1 TABS, ORAL, DAILY
     Route: 048
  10. PRINIVIL [Concomitant]
     Active Substance: LISINOPRIL
  11. METOPROLOL SUCCINATE [Concomitant]
     Active Substance: METOPROLOL SUCCINATE
     Dosage: 1 TABS, ORAL, DAILY
     Route: 048
  12. NULYTELY [Concomitant]
     Active Substance: POLYETHYLENE GLYCOL 3350\POTASSIUM CHLORIDE\SODIUM BICARBONATE\SODIUM CHLORIDE
     Dosage: 240 ML, ORAL, Q10M
     Route: 048
  13. OMEPRAZOLE [Concomitant]
     Active Substance: OMEPRAZOLE
     Dosage: 1 CAP, ORAL, ONCE A DAY (BEFORE MEALS)
     Route: 048

REACTIONS (30)
  - Diabetes mellitus [Not Recovered/Not Resolved]
  - Diabetic ketoacidosis [Unknown]
  - Metabolic acidosis [Recovered/Resolved]
  - Lipase increased [Unknown]
  - Acute kidney injury [Recovered/Resolved]
  - Leukocytosis [Recovered/Resolved]
  - Electrolyte imbalance [Unknown]
  - Nephrolithiasis [Unknown]
  - Pancreatic atrophy [Unknown]
  - Granulomatous liver disease [Unknown]
  - Pancreatic failure [Unknown]
  - Diabetes mellitus inadequate control [Unknown]
  - Adrenal insufficiency [Unknown]
  - Impaired gastric emptying [Unknown]
  - Diarrhoea [Unknown]
  - Mucosal dryness [Unknown]
  - Enteritis [Unknown]
  - Hiatus hernia [Unknown]
  - Oesophagitis [Unknown]
  - Splenic granuloma [Unknown]
  - Splenic calcification [Unknown]
  - Hepatic calcification [Unknown]
  - Diverticulum [Unknown]
  - Inguinal hernia [Unknown]
  - Umbilical hernia [Unknown]
  - Pyrexia [Recovered/Resolved]
  - Head injury [Recovering/Resolving]
  - Decreased appetite [Not Recovered/Not Resolved]
  - Cortisol decreased [Unknown]
  - Product use issue [Unknown]

NARRATIVE: CASE EVENT DATE: 20220101
